FAERS Safety Report 6755967-3 (Version None)
Quarter: 2010Q2

REPORT INFORMATION
  Report Type: 
  Country: None (occurrence: None)
  Receive Date: 20100604
  Receipt Date: 20100522
  Transmission Date: 20101027
  Serious: Yes (Hospitalization)
  Sender: FDA-Public Use
  Company Number: PHFR2010GB00757

PATIENT
  Sex: Female

DRUGS (3)
  1. TEGRETOL [Suspect]
     Dosage: UNK
  2. TEGRETOL [Suspect]
     Dosage: UNK
  3. QUETIAPINE [Concomitant]
     Indication: AFFECTIVE DISORDER

REACTIONS (1)
  - AFFECTIVE DISORDER [None]
